FAERS Safety Report 12588019 (Version 2)
Quarter: 2016Q3

REPORT INFORMATION
  Report Type: Spontaneous
  Country: US (occurrence: US)
  Receive Date: 20160725
  Receipt Date: 20160801
  Transmission Date: 20161109
  Serious: Yes (Life-Threatening, Hospitalization)
  Sender: FDA-Public Use
  Company Number: US-PFIZER INC-2016348087

PATIENT
  Age: 81 Year
  Sex: Female

DRUGS (1)
  1. DILTIAZEM HCL [Suspect]
     Active Substance: DILTIAZEM HYDROCHLORIDE
     Dosage: 5.6 G, SINGLE
     Route: 048

REACTIONS (2)
  - Intentional overdose [Recovered/Resolved]
  - Suicide attempt [Recovered/Resolved]
